FAERS Safety Report 6662876-7 (Version None)
Quarter: 2010Q1

REPORT INFORMATION
  Report Type: 
  Country: None (occurrence: None)
  Receive Date: 20100322
  Receipt Date: 20090608
  Transmission Date: 20100710
  Serious: Yes (Other)
  Sender: FDA-Public Use
  Company Number: E-09-033 (09-080)

PATIENT
  Age: 81 Year
  Sex: Female

DRUGS (6)
  1. SULFAZINE EC 500 MG (QUALITEST) [Suspect]
     Indication: COLITIS ULCERATIVE
     Dosage: ONE P.O. Q.I.D.
     Route: 048
     Dates: start: 20090405, end: 20090531
  2. IRON INFUSION [Concomitant]
  3. PREDNISONE [Concomitant]
  4. XANAX [Concomitant]
  5. SYNTHROID [Concomitant]
  6. PREMARIN [Concomitant]

REACTIONS (1)
  - DIARRHOEA [None]
